FAERS Safety Report 13973280 (Version 1)
Quarter: 2017Q3

REPORT INFORMATION
  Report Type: Spontaneous
  Country: IT (occurrence: IT)
  Receive Date: 20170915
  Receipt Date: 20170915
  Transmission Date: 20171128
  Serious: Yes (Hospitalization, Other)
  Sender: FDA-Public Use
  Company Number: IT-MYLANLABS-2017M1057163

PATIENT
  Age: 8 Decade
  Sex: Female

DRUGS (1)
  1. PREDNISONE. [Suspect]
     Active Substance: PREDNISONE
     Indication: POLYMYALGIA RHEUMATICA
     Dosage: 4 MG DAILY
     Route: 065
     Dates: start: 2006

REACTIONS (2)
  - Kaposi^s sarcoma [Recovering/Resolving]
  - Neuroendocrine carcinoma of the skin [Recovering/Resolving]

NARRATIVE: CASE EVENT DATE: 2008
